FAERS Safety Report 9255186 (Version 4)
Quarter: 2014Q3

REPORT INFORMATION
  Report Type: Spontaneous
  Country: US (occurrence: US)
  Receive Date: 20130425
  Receipt Date: 20140828
  Transmission Date: 20150326
  Serious: Yes (Hospitalization, Disabling)
  Sender: FDA-Public Use
  Company Number: US-ASTRAZENECA-2013SE27584

PATIENT
  Age: 41 Year
  Sex: Female
  Weight: 61.2 kg

DRUGS (21)
  1. PREDNISONE. [Concomitant]
     Active Substance: PREDNISONE
     Dates: start: 20050721
  2. SKELAXIN [Concomitant]
     Active Substance: METAXALONE
     Dates: start: 20050902
  3. MOBIC [Concomitant]
     Active Substance: MELOXICAM
     Dates: start: 20050908
  4. ESTRADIOL. [Concomitant]
     Active Substance: ESTRADIOL
  5. OMEPRAZOLE. [Suspect]
     Active Substance: OMEPRAZOLE
     Route: 048
     Dates: start: 20140307
  6. VITAMIN B6 [Concomitant]
     Active Substance: PYRIDOXINE HYDROCHLORIDE
  7. CELEBREX [Concomitant]
     Active Substance: CELECOXIB
     Dates: start: 20030821
  8. NEXIUM [Suspect]
     Active Substance: ESOMEPRAZOLE MAGNESIUM
     Indication: HYPERCHLORHYDRIA
     Route: 048
     Dates: start: 20030701
  9. SYNTEST HS [Concomitant]
     Dates: start: 20030303
  10. PEPCID [Concomitant]
     Active Substance: FAMOTIDINE
  11. ZANTAC [Concomitant]
     Active Substance: RANITIDINE HYDROCHLORIDE
  12. HYDROCODONE/APAP [Concomitant]
     Active Substance: ACETAMINOPHEN\HYDROCODONE
     Dosage: 5/500 TA
     Dates: start: 20050902
  13. NEXIUM [Suspect]
     Active Substance: ESOMEPRAZOLE MAGNESIUM
     Indication: HYPERCHLORHYDRIA
     Dosage: ONCE
     Route: 048
  14. OMEPRAZOLE. [Suspect]
     Active Substance: OMEPRAZOLE
     Route: 048
  15. LISINOPRIL. [Concomitant]
     Active Substance: LISINOPRIL
     Indication: BLOOD PRESSURE
  16. VITAMIN D3 [Concomitant]
     Active Substance: CHOLECALCIFEROL
  17. NEXIUM [Suspect]
     Active Substance: ESOMEPRAZOLE MAGNESIUM
     Indication: HYPERCHLORHYDRIA
     Route: 048
     Dates: start: 20041026
  18. PREVACID [Suspect]
     Active Substance: LANSOPRAZOLE
     Indication: GASTROOESOPHAGEAL REFLUX DISEASE
     Dates: start: 1990, end: 2012
  19. PROPOXY-N/APAP [Concomitant]
     Dosage: 100-650 MG TAB
     Dates: start: 20050813
  20. FE-TINIC [Concomitant]
     Active Substance: VITAMINS
     Dates: start: 20031009
  21. ADVIL [Concomitant]
     Active Substance: IBUPROFEN

REACTIONS (6)
  - Back injury [Unknown]
  - Bone disorder [Unknown]
  - Osteoporosis [Unknown]
  - Tendon disorder [Unknown]
  - Fall [Unknown]
  - Ankle fracture [Unknown]

NARRATIVE: CASE EVENT DATE: 1990
